FAERS Safety Report 20635956 (Version 2)
Quarter: 2022Q2

REPORT INFORMATION
  Report Type: Spontaneous
  Country: SA (occurrence: SA)
  Receive Date: 20220325
  Receipt Date: 20220401
  Transmission Date: 20220721
  Serious: Yes (Death)
  Sender: FDA-Public Use
  Company Number: SA-NOVARTISPH-NVSC2022SA066988

PATIENT
  Sex: Female

DRUGS (1)
  1. ADAKVEO [Suspect]
     Active Substance: CRIZANLIZUMAB-TMCA
     Indication: Sickle cell anaemia with crisis
     Dosage: UNK (TOOK 2 DOSES OF ADAKVEO WITH NO AE)
     Route: 065

REACTIONS (1)
  - Gastrointestinal haemorrhage [Fatal]
